FAERS Safety Report 15979956 (Version 1)
Quarter: 2019Q1

REPORT INFORMATION
  Report Type: Spontaneous
  Country: SE (occurrence: SE)
  Receive Date: 20190219
  Receipt Date: 20190219
  Transmission Date: 20190418
  Serious: Yes (Other)
  Sender: FDA-Public Use
  Company Number: SE-ACCORD-108108

PATIENT
  Age: 91 Year
  Sex: Female

DRUGS (12)
  1. ALVEDON [Concomitant]
     Active Substance: ACETAMINOPHEN
  2. OXYNORM [Concomitant]
     Active Substance: OXYCODONE HYDROCHLORIDE
  3. KALCIPOS-D [Concomitant]
     Active Substance: CALCIUM CARBONATE\CHOLECALCIFEROL
  4. LOSARTAN. [Concomitant]
     Active Substance: LOSARTAN
  5. FELODIPINE. [Concomitant]
     Active Substance: FELODIPINE
  6. MOVICOL [Concomitant]
     Active Substance: POLYETHYLENE GLYCOL 3350\POTASSIUM CHLORIDE\SODIUM BICARBONATE\SODIUM CHLORIDE
  7. XALATAN [Concomitant]
     Active Substance: LATANOPROST
  8. ALENDRONIC ACID [Concomitant]
     Active Substance: ALENDRONIC ACID
  9. PARAFLEX [Concomitant]
     Active Substance: CHLORZOXAZONE
  10. OXYCODONE [Concomitant]
     Active Substance: OXYCODONE
  11. TROMBYL [Concomitant]
     Active Substance: ASPIRIN
  12. ATORVASTATIN/ATORVASTATIN CALCIUM [Suspect]
     Active Substance: ATORVASTATIN CALCIUM
     Indication: HYPERLIPIDAEMIA
     Route: 048
     Dates: start: 20180514, end: 20180525

REACTIONS (1)
  - Upper gastrointestinal haemorrhage [Recovered/Resolved]

NARRATIVE: CASE EVENT DATE: 20180524
